FAERS Safety Report 6554291-1 (Version None)
Quarter: 2010Q1

REPORT INFORMATION
  Report Type: 
  Country: None (occurrence: None)
  Receive Date: 20100127
  Receipt Date: 20100122
  Transmission Date: 20100710
  Serious: Yes (Other)
  Sender: FDA-Public Use
  Company Number: US-PFIZER INC-2010010358

PATIENT
  Sex: Male

DRUGS (2)
  1. XALATAN [Suspect]
     Indication: GLAUCOMA
     Dosage: UNK
  2. TIMOLOL [Concomitant]
     Dosage: UNK

REACTIONS (4)
  - CATARACT [None]
  - EYE PAIN [None]
  - READING DISORDER [None]
  - VISION BLURRED [None]
